FAERS Safety Report 7071569-6 (Version None)
Quarter: 2010Q4

REPORT INFORMATION
  Report Type: 
  Country: None (occurrence: None)
  Receive Date: 20101029
  Receipt Date: 20091103
  Transmission Date: 20110411
  Serious: No
  Sender: FDA-Public Use
  Company Number: A0808694A

PATIENT
  Age: 79 Year
  Sex: Female

DRUGS (11)
  1. ADVAIR DISKUS 100/50 [Suspect]
     Indication: CHRONIC OBSTRUCTIVE PULMONARY DISEASE
     Dosage: 250MCG TWICE PER DAY
     Route: 055
  2. KLOR-CON [Concomitant]
  3. LASIX [Concomitant]
  4. PLAVIX [Concomitant]
  5. MAGNESIUM OXIDE [Concomitant]
  6. LOTENSIN [Concomitant]
  7. LYRICA [Concomitant]
  8. PRILOSEC [Concomitant]
  9. COREG [Concomitant]
  10. CLONAZEPAM [Concomitant]
  11. LORTAB [Concomitant]

REACTIONS (8)
  - BLOOD GLUCOSE INCREASED [None]
  - BLOOD PRESSURE INCREASED [None]
  - CANDIDIASIS [None]
  - HEART RATE IRREGULAR [None]
  - ORAL PAIN [None]
  - OROPHARYNGEAL BLISTERING [None]
  - PRURITUS GENERALISED [None]
  - TONGUE BLISTERING [None]
